FAERS Safety Report 4885532-4 (Version None)
Quarter: 2006Q1

REPORT INFORMATION
  Report Type: 
  Country: None (occurrence: None)
  Receive Date: 20060119
  Receipt Date: 20050503
  Transmission Date: 20060701
  Serious: Yes (Death)
  Sender: FDA-Public Use
  Company Number: GB-MERCK-0505GBR00047

PATIENT
  Age: 88 Year
  Sex: Male
  Weight: 80 kg

DRUGS (8)
  1. ZOCOR [Suspect]
     Route: 048
     Dates: start: 20020501, end: 20050414
  2. FUROSEMIDE [Concomitant]
     Indication: MYOCARDIAL ISCHAEMIA
     Route: 048
     Dates: start: 20010101, end: 20050418
  3. LANSOPRAZOLE [Concomitant]
     Indication: DUODENAL ULCER HAEMORRHAGE
     Route: 048
     Dates: start: 20050318
  4. METOPROLOL [Concomitant]
     Indication: MYOCARDIAL ISCHAEMIA
     Route: 048
     Dates: start: 20010101, end: 20050419
  5. MELOXICAM [Concomitant]
     Indication: MYOCARDIAL ISCHAEMIA
     Route: 048
     Dates: start: 20010101, end: 20050318
  6. ASPIRIN [Concomitant]
     Indication: MYOCARDIAL ISCHAEMIA
     Route: 048
     Dates: start: 20010101, end: 20050318
  7. QUININE SULFATE [Concomitant]
     Route: 048
     Dates: end: 20050321
  8. ALLOPURINOL [Concomitant]
     Route: 048
     Dates: end: 20050321

REACTIONS (6)
  - DIARRHOEA [None]
  - DUODENAL ULCER HAEMORRHAGE [None]
  - MULTI-ORGAN FAILURE [None]
  - MUSCULAR WEAKNESS [None]
  - RHABDOMYOLYSIS [None]
  - VOMITING [None]
